FAERS Safety Report 7481515-9 (Version None)
Quarter: 2011Q2

REPORT INFORMATION
  Report Type: 
  Country: None (occurrence: None)
  Receive Date: 20110516
  Receipt Date: 20110427
  Transmission Date: 20111010
  Serious: No
  Sender: FDA-Public Use
  Company Number: US-B.I. PHARMACEUTICALS,INC./RIDGEFIELD-2011-BP-08443BP

PATIENT
  Sex: Male

DRUGS (22)
  1. PRADAXA [Suspect]
     Indication: CARDIAC FAILURE CONGESTIVE
  2. LOSARTAN [Concomitant]
  3. POTASSIUM [Concomitant]
     Indication: PROPHYLAXIS
  4. FERROUS SULFATE TAB [Concomitant]
     Indication: ANAEMIA
  5. A SUPPLEMENT FOR PROSTATE HEALTH [Concomitant]
     Indication: SUPPLEMENTATION THERAPY
  6. VALACYCLOVIR [Concomitant]
  7. CLINDAMYCIN [Concomitant]
     Indication: DENTAL CARE
  8. COENZYME Q10 [Concomitant]
     Indication: SUPPLEMENTATION THERAPY
  9. AMIODARONE HCL [Concomitant]
  10. KRILL OIL [Concomitant]
     Indication: SUPPLEMENTATION THERAPY
  11. CALCIUM [Concomitant]
     Indication: SUPPLEMENTATION THERAPY
  12. LEVOTHYROXINE SODIUM [Concomitant]
  13. LEVOTHROID [Concomitant]
     Indication: THYROID DISORDER
  14. METOPROLOL SUCCINATE [Concomitant]
  15. FINASTERIDE [Concomitant]
     Indication: PROSTATOMEGALY
  16. SIMVASTATIN [Concomitant]
     Indication: BLOOD CHOLESTEROL INCREASED
  17. CARAC [Concomitant]
     Indication: PRECANCEROUS SKIN LESION
     Route: 061
     Dates: start: 20110201, end: 20110310
  18. FUROSEMIDE [Concomitant]
  19. LASIX [Concomitant]
     Indication: CARDIAC FAILURE CONGESTIVE
  20. DOXAZOSIN MESYLATE [Concomitant]
  21. GRAPE SEED EXTRACT [Concomitant]
     Indication: SUPPLEMENTATION THERAPY
  22. PRADAXA [Suspect]
     Indication: ATRIAL FIBRILLATION
     Dosage: 300 MG
     Route: 048
     Dates: start: 20110303

REACTIONS (4)
  - COUGH [None]
  - ERYTHEMA [None]
  - PULMONARY CONGESTION [None]
  - EYE DISCHARGE [None]
